FAERS Safety Report 17517077 (Version 1)
Quarter: 2020Q1

REPORT INFORMATION
  Report Type: Spontaneous
  Country: PT (occurrence: PT)
  Receive Date: 20200309
  Receipt Date: 20200309
  Transmission Date: 20200409
  Serious: Yes (Other)
  Sender: FDA-Public Use
  Company Number: PT-MYLANLABS-2020M1023576

PATIENT
  Age: 42 Year
  Sex: Female

DRUGS (2)
  1. FUCIDINE                           /00065702/ [Concomitant]
     Active Substance: FUSIDATE SODIUM
     Dosage: UNK
     Route: 048
     Dates: start: 201708
  2. IBUPROFEN. [Suspect]
     Active Substance: IBUPROFEN
     Indication: INFLAMMATION
     Dosage: UNK
     Route: 048
     Dates: start: 201708

REACTIONS (2)
  - Rash pruritic [Recovered/Resolved]
  - Face oedema [Recovered/Resolved]

NARRATIVE: CASE EVENT DATE: 201708
